FAERS Safety Report 11102598 (Version 1)
Quarter: 2015Q2

REPORT INFORMATION
  Report Type: Spontaneous
  Country: None (occurrence: None)
  Receive Date: 20150508
  Receipt Date: 20150508
  Transmission Date: 20150821
  Serious: No
  Sender: FDA-Public Use
  Company Number: None

PATIENT
  Age: 70 Year
  Sex: Male

DRUGS (2)
  1. ATORVASTATIN [Suspect]
     Active Substance: ATORVASTATIN
     Indication: BLOOD CHOLESTEROL
     Route: 048
  2. APOTEX FENTANYL PATCHES [Concomitant]
     Active Substance: FENTANYL

REACTIONS (1)
  - Swelling face [None]

NARRATIVE: CASE EVENT DATE: 20150507
